FAERS Safety Report 4607671-5 (Version None)
Quarter: 2005Q1

REPORT INFORMATION
  Report Type: 
  Country: None (occurrence: None)
  Receive Date: 20050310
  Receipt Date: 20050225
  Transmission Date: 20050727
  Serious: Yes (Life-Threatening, Hospitalization)
  Sender: FDA-Public Use
  Company Number: 2004-00843

PATIENT
  Age: 63 Year
  Sex: Male
  Weight: 84.6 kg

DRUGS (8)
  1. VELCADE [Suspect]
     Indication: MULTIPLE MYELOMA
     Dosage: 1.4 MG, INTRAVENOUS
     Route: 042
     Dates: start: 20041006
  2. PENICILLIN V [Concomitant]
  3. ACYCLOVIR [Concomitant]
  4. MORPHINE SULFATE [Concomitant]
  5. QUININE SULPHATE (QUININE SULFATE) [Concomitant]
  6. OMEPRAZOLE [Concomitant]
  7. ERYTHROPOIETIN (ERYTHROPOIETIN) [Concomitant]
  8. PAMIDRONATE DISODIUM [Concomitant]

REACTIONS (4)
  - BLOOD ALKALINE PHOSPHATASE INCREASED [None]
  - HAEMOGLOBIN DECREASED [None]
  - SUPRAVENTRICULAR TACHYCARDIA [None]
  - WHITE BLOOD CELL COUNT DECREASED [None]
